FAERS Safety Report 7461468-X (Version None)
Quarter: 2011Q2

REPORT INFORMATION
  Report Type: 
  Country: None (occurrence: None)
  Receive Date: 20110506
  Receipt Date: 20110503
  Transmission Date: 20111010
  Serious: Yes (Other)
  Sender: FDA-Public Use
  Company Number: US-PFIZER INC-2011060514

PATIENT
  Sex: Male
  Weight: 66.213 kg

DRUGS (3)
  1. ZOLOFT [Suspect]
     Indication: DEPRESSION
     Dosage: 150 MG, 1X/DAY
     Route: 048
  2. NIASPAN [Concomitant]
     Dosage: 500 MG, 1X/DAY
  3. PROTONIX [Concomitant]
     Dosage: 40 MG, 1X/DAY

REACTIONS (3)
  - HEADACHE [None]
  - ANXIETY [None]
  - DEPRESSION [None]
